FAERS Safety Report 6218242-1 (Version None)
Quarter: 2009Q2

REPORT INFORMATION
  Report Type: 
  Country: None (occurrence: None)
  Receive Date: 20090608
  Receipt Date: 20090603
  Transmission Date: 20091009
  Serious: Yes (Other)
  Sender: FDA-Public Use
  Company Number: JP-BRISTOL-MYERS SQUIBB COMPANY-14623896

PATIENT
  Age: 84 Year
  Sex: Female

DRUGS (3)
  1. AVAPRO [Suspect]
     Indication: HYPERTENSION
     Dosage: TAKEN AS TAB
     Dates: start: 20080731, end: 20090430
  2. CONIEL [Suspect]
     Indication: HYPERTENSION
     Dosage: TAKEN AS TAB
     Route: 048
     Dates: start: 20080604, end: 20090430
  3. PNEUMOVAX 23 [Suspect]
     Route: 058
     Dates: start: 20090107

REACTIONS (1)
  - PRURIGO [None]
